FAERS Safety Report 10911915 (Version 1)
Quarter: 2015Q1

REPORT INFORMATION
  Report Type: Spontaneous
  Country: US (occurrence: None)
  Receive Date: 20150310
  Receipt Date: 20150310
  Transmission Date: 20150721
  Serious: Yes (Disabling)
  Sender: FDA-Public Use
  Company Number: None

PATIENT
  Age: 59 Year
  Sex: Male
  Weight: 74.84 kg

DRUGS (5)
  1. KIRKLAND GLUCOSAMINE/CHONDROIITIN [Concomitant]
  2. KIRKLAND ARTHRITIS PAIN RELIEVER [Concomitant]
  3. LISINOPRIL. [Concomitant]
     Active Substance: LISINOPRIL
  4. ASTHMANEFRIN [Suspect]
     Active Substance: RACEPINEPHRINE HYDROCHLORIDE
     Indication: ASTHMA
     Dosage: 12 IN 24 HRS.
     Route: 055
     Dates: start: 20130501, end: 20150307
  5. ONE A DAY MENS MULTIVITAMIN 50+ [Concomitant]

REACTIONS (7)
  - Weight decreased [None]
  - Hypertension [None]
  - Headache [None]
  - Nausea [None]
  - Decreased appetite [None]
  - Nervousness [None]
  - Insomnia [None]

NARRATIVE: CASE EVENT DATE: 20150309
